FAERS Safety Report 8996943 (Version 2)
Quarter: 2013Q1

REPORT INFORMATION
  Report Type: Spontaneous
  Country: US (occurrence: US)
  Receive Date: 20130104
  Receipt Date: 20130213
  Transmission Date: 20140127
  Serious: No
  Sender: FDA-Public Use
  Company Number: US-B.I. PHARMACEUTICALS,INC./RIDGEFIELD-2012-BI-03796BP

PATIENT
  Age: 85 Year
  Sex: Male
  Weight: 81.65 kg

DRUGS (3)
  1. PRADAXA [Suspect]
     Indication: CEREBROVASCULAR ACCIDENT PROPHYLAXIS
     Dosage: 150 MG
     Route: 048
     Dates: start: 20101201, end: 2012
  2. PRADAXA [Suspect]
     Indication: ATRIAL FIBRILLATION
     Dosage: 150 MG
     Route: 048
  3. ASPIRIN [Concomitant]
     Dosage: 81 MG

REACTIONS (2)
  - Haemorrhoidal haemorrhage [Recovered/Resolved]
  - Haemorrhoids [Recovered/Resolved]
